FAERS Safety Report 7736461-X (Version None)
Quarter: 2011Q3

REPORT INFORMATION
  Report Type: 
  Country: None (occurrence: None)
  Receive Date: 20110908
  Receipt Date: 20110901
  Transmission Date: 20111222
  Serious: Yes (Hospitalization)
  Sender: FDA-Public Use
  Company Number: BR-BRISTOL-MYERS SQUIBB COMPANY-16032468

PATIENT
  Age: 36 Year
  Sex: Female
  Weight: 70 kg

DRUGS (1)
  1. ABILIFY [Suspect]
     Indication: SCHIZOPHRENIA
     Dosage: 1 TABLET OF 30 MG ORAL IN THE MORNING AND IN THE NIGHT.REDUCED TO 1 TAB AT NIGHT
     Route: 048
     Dates: start: 20110824, end: 20110902

REACTIONS (4)
  - UNRESPONSIVE TO STIMULI [None]
  - APHASIA [None]
  - OVERDOSE [None]
  - AFFECT LABILITY [None]
